FAERS Safety Report 5217296-9 (Version None)
Quarter: 2007Q1

REPORT INFORMATION
  Report Type: 
  Country: None (occurrence: None)
  Receive Date: 20070124
  Receipt Date: 20060104
  Transmission Date: 20070707
  Serious: No
  Sender: FDA-Public Use
  Company Number: US-GLAXOSMITHKLINE-A0586826A

PATIENT
  Age: 58 Year
  Sex: Female

DRUGS (4)
  1. PAXIL CR [Suspect]
     Indication: CONVULSION PROPHYLAXIS
     Dosage: 25MG PER DAY
     Route: 048
     Dates: start: 20050101
  2. KLONOPIN [Concomitant]
  3. VICODIN [Concomitant]
  4. TOPAMAX [Concomitant]

REACTIONS (5)
  - CHEST PAIN [None]
  - DRUG INEFFECTIVE [None]
  - FEELING ABNORMAL [None]
  - HEADACHE [None]
  - NAUSEA [None]
